FAERS Safety Report 15858737 (Version 1)
Quarter: 2018Q4

REPORT INFORMATION
  Report Type: Spontaneous
  Country: US (occurrence: US)
  Receive Date: 20181228
  Receipt Date: 20181228
  Transmission Date: 20190205
  Serious: Yes (Hospitalization)
  Sender: FDA-Public Use
  Company Number: None

PATIENT
  Age: 70 Year
  Sex: Male
  Weight: 68.04 kg

DRUGS (3)
  1. DAILY VITAMIN [Concomitant]
     Active Substance: VITAMINS
  2. DAILY VITAMIN TABLET [Concomitant]
  3. NYQUIL COLD AND FLU [Suspect]
     Active Substance: ACETAMINOPHEN\DEXTROMETHORPHAN HYDROBROMIDE\DOXYLAMINE SUCCINATE
     Indication: INSOMNIA
     Dosage: ?          QUANTITY:1 TABLESPOON;?
     Dates: end: 20171216

REACTIONS (4)
  - Road traffic accident [None]
  - Amnesia [None]
  - Loss of consciousness [None]
  - Disorganised speech [None]

NARRATIVE: CASE EVENT DATE: 20171215
